FAERS Safety Report 5142371-7 (Version None)
Quarter: 2006Q4

REPORT INFORMATION
  Report Type: 
  Country: None (occurrence: None)
  Receive Date: 20061102
  Receipt Date: 20061025
  Transmission Date: 20070319
  Serious: Yes (Hospitalization)
  Sender: FDA-Public Use
  Company Number: FR-GLAXOSMITHKLINE-B0444131A

PATIENT
  Age: 72 Year
  Sex: Male

DRUGS (3)
  1. IMUREL [Suspect]
     Indication: POLYARTHRITIS
     Dosage: 3TAB PER DAY
     Route: 048
     Dates: start: 20060823, end: 20060831
  2. CLAMOXYL [Suspect]
     Indication: BRONCHITIS
     Dosage: 1G PER DAY
     Route: 048
     Dates: start: 20060823
  3. CORTICOID [Concomitant]
     Indication: POLYARTHRITIS
     Route: 065

REACTIONS (8)
  - ABDOMINAL PAIN UPPER [None]
  - ANOREXIA [None]
  - BLOOD ALKALINE PHOSPHATASE INCREASED [None]
  - DIARRHOEA [None]
  - GAMMA-GLUTAMYLTRANSFERASE INCREASED [None]
  - HEPATITIS [None]
  - TRANSAMINASES INCREASED [None]
  - VOMITING [None]
